FAERS Safety Report 9657934 (Version 3)
Quarter: 2013Q4

REPORT INFORMATION
  Report Type: Spontaneous
  Country: IT (occurrence: IT)
  Receive Date: 20131030
  Receipt Date: 20131204
  Transmission Date: 20140711
  Serious: Yes (Life-Threatening)
  Sender: FDA-Public Use
  Company Number: IT-PFIZER INC-2013306825

PATIENT
  Age: 51 Year
  Sex: Male

DRUGS (3)
  1. XANAX [Suspect]
     Indication: ANXIETY
     Dosage: 3 MG, DAILY
     Route: 048
  2. NORVASC [Suspect]
     Indication: HYPERTENSION
     Dosage: 20 MG, DAILY
     Route: 048
  3. KEPPRA [Suspect]
     Indication: EPILEPSY
     Dosage: 3000 MG, DAILY
     Route: 048

REACTIONS (9)
  - Drug abuse [Recovered/Resolved]
  - Disturbance in attention [Recovered/Resolved]
  - Echopraxia [Recovered/Resolved]
  - Slow speech [Recovered/Resolved]
  - Cyanosis [Recovered/Resolved]
  - Cough [Recovered/Resolved]
  - Cold sweat [Recovered/Resolved]
  - Depressed level of consciousness [Recovered/Resolved]
  - Hyperhidrosis [Recovered/Resolved]
